FAERS Safety Report 25168291 (Version 3)
Quarter: 2025Q2

REPORT INFORMATION
  Report Type: Spontaneous
  Country: SI (occurrence: SI)
  Receive Date: 20250407
  Receipt Date: 20250530
  Transmission Date: 20250716
  Serious: Yes (Death, Hospitalization, Other)
  Sender: MERCK SHARP & DOHME LLC
  Company Number: SI-009507513-2273450

PATIENT
  Age: 74 Year
  Sex: Female

DRUGS (2)
  1. PEMBROLIZUMAB [Suspect]
     Active Substance: PEMBROLIZUMAB
     Indication: Renal cancer
     Dosage: 200 MG EVERY 21 DAYS (Q3W)
     Route: 065
     Dates: start: 202412
  2. LENVATINIB MESYLATE [Suspect]
     Active Substance: LENVATINIB MESYLATE
     Indication: Renal cancer
     Route: 065
     Dates: start: 202412

REACTIONS (23)
  - Cardiac arrest [Fatal]
  - Inferior vena cava dilatation [Unknown]
  - Stomatitis [Unknown]
  - Myositis [Recovered/Resolved]
  - Autoimmune myocarditis [Recovered/Resolved]
  - Ill-defined disorder [Unknown]
  - Ill-defined disorder [Unknown]
  - Cellulitis [Unknown]
  - Acute respiratory failure [Unknown]
  - Thrombosis [Unknown]
  - Diarrhoea [Unknown]
  - Cardiac failure [Unknown]
  - Metabolic acidosis [Unknown]
  - Haemoglobin decreased [Unknown]
  - Supraventricular tachycardia [Unknown]
  - Myoglobin blood increased [Unknown]
  - Hepatitis [Unknown]
  - Troponin I increased [Unknown]
  - Cardiac failure [Unknown]
  - Respiratory failure [Unknown]
  - General physical health deterioration [Unknown]
  - Liver disorder [Unknown]
  - Intra-abdominal haemorrhage [Unknown]

NARRATIVE: CASE EVENT DATE: 20250101
